FAERS Safety Report 23594513 (Version 1)
Quarter: 2024Q1

REPORT INFORMATION
  Report Type: Report from Study
  Country: ES (occurrence: ES)
  Receive Date: 20240305
  Receipt Date: 20240305
  Transmission Date: 20240410
  Serious: Yes (Other)
  Sender: FDA-Public Use
  Company Number: ES-ABBVIE-5662814

PATIENT
  Age: 80 Year
  Sex: Female

DRUGS (2)
  1. CARBIDOPA\LEVODOPA [Suspect]
     Active Substance: CARBIDOPA\LEVODOPA
     Indication: Parkinson^s disease
     Route: 050
     Dates: start: 20210630
  2. CARBIDOPA\LEVODOPA [Suspect]
     Active Substance: CARBIDOPA\LEVODOPA

REACTIONS (5)
  - Blood pressure increased [Recovered/Resolved]
  - Unevaluable event [Recovered/Resolved]
  - Movement disorder [Recovered/Resolved]
  - Confusional state [Recovered/Resolved]
  - Obstruction [Recovered/Resolved]

NARRATIVE: CASE EVENT DATE: 20240228
